FAERS Safety Report 9256980 (Version 1)
Quarter: 2013Q2

REPORT INFORMATION
  Report Type: Spontaneous
  Country: GB (occurrence: None)
  Receive Date: 20130423
  Receipt Date: 20130423
  Transmission Date: 20140414
  Serious: Yes (Life-Threatening, Other)
  Sender: FDA-Public Use
  Company Number: GER/UKI/13/0029113

PATIENT
  Age: 6 Hour
  Sex: Female
  Weight: 2.47 kg

DRUGS (2)
  1. QUETIAPINE (QUETIAPINE) (QUETIAPINE) [Suspect]
     Indication: PERSONALITY DISORDER
     Route: 064
  2. SERTRALINE [Suspect]
     Indication: INTENTIONAL SELF-INJURY
     Dates: start: 20130301

REACTIONS (5)
  - Apnoea neonatal [None]
  - Cyanosis [None]
  - Unresponsive to stimuli [None]
  - Hypotonia [None]
  - Maternal drugs affecting foetus [None]
